FAERS Safety Report 18210744 (Version 2)
Quarter: 2020Q3

REPORT INFORMATION
  Report Type: Spontaneous
  Country: US (occurrence: US)
  Receive Date: 20200829
  Receipt Date: 20200915
  Transmission Date: 20201103
  Serious: Yes (Other)
  Sender: FDA-Public Use
  Company Number: US-009507513-2008USA011557

PATIENT
  Age: 52 Year
  Sex: Female
  Weight: 63.96 kg

DRUGS (3)
  1. ELIQUIS [Concomitant]
     Active Substance: APIXABAN
     Dosage: START DATE: MARCH 2017 OR APRIL 2017, 2.5 MILLIGRAM, ONCE A DAY (HIGHER DOSE)
     Route: 048
     Dates: start: 2017
  2. ZOCOR [Suspect]
     Active Substance: SIMVASTATIN
     Indication: BLOOD CHOLESTEROL INCREASED
     Dosage: 1 TABLET IN THE EVENING
     Route: 048
     Dates: start: 201904, end: 202005
  3. ZYKADIA [Suspect]
     Active Substance: CERITINIB
     Dosage: UNK

REACTIONS (11)
  - Amnesia [Recovering/Resolving]
  - Weight increased [Unknown]
  - Peripheral swelling [Recovering/Resolving]
  - Angina pectoris [Unknown]
  - Discomfort [Unknown]
  - Visual impairment [Unknown]
  - Dyspnoea [Recovering/Resolving]
  - Blood cholesterol increased [Unknown]
  - Cardiac murmur [Unknown]
  - Liver disorder [Unknown]
  - Weight loss poor [Unknown]

NARRATIVE: CASE EVENT DATE: 2018
